FAERS Safety Report 5029395-5 (Version None)
Quarter: 2006Q2

REPORT INFORMATION
  Report Type: 
  Country: None (occurrence: None)
  Receive Date: 20060614
  Receipt Date: 20060605
  Transmission Date: 20061013
  Serious: Yes (Other)
  Sender: FDA-Public Use
  Company Number: 2005159925

PATIENT
  Sex: Female
  Weight: 63.5036 kg

DRUGS (6)
  1. DETROL [Suspect]
     Indication: BLADDER DISORDER
     Dates: end: 20040101
  2. ALL OTHER THERAPEUTIC PRODUCTS (ALL OTHER THERAPEUTIC PRODUCTS) [Suspect]
     Indication: ILL-DEFINED DISORDER
     Dates: start: 20040101, end: 20040101
  3. LIPITOR [Concomitant]
  4. TOPROL-XL [Concomitant]
  5. SYNTHROID [Concomitant]
  6. VITAMINS [Concomitant]

REACTIONS (3)
  - DENTAL CARIES [None]
  - DRY MOUTH [None]
  - RASH [None]
